FAERS Safety Report 18456389 (Version 2)
Quarter: 2020Q4

REPORT INFORMATION
  Report Type: Spontaneous
  Country: FR (occurrence: FR)
  Receive Date: 20201103
  Receipt Date: 20201117
  Transmission Date: 20210114
  Serious: No
  Sender: FDA-Public Use
  Company Number: FR-GLAXOSMITHKLINE-FR2020215776

PATIENT
  Sex: Female

DRUGS (1)
  1. NICORETTE [Suspect]
     Active Substance: NICOTINE
     Indication: PRODUCT USED FOR UNKNOWN INDICATION
     Dosage: SHE CONSUMES 10 GUMS OF 2MG FRUIT FLAVOR PER DAY
     Route: 065

REACTIONS (3)
  - Intentional product use issue [Not Recovered/Not Resolved]
  - Nicotine dependence [Not Recovered/Not Resolved]
  - Headache [Unknown]
